FAERS Safety Report 18238986 (Version 2)
Quarter: 2020Q3

REPORT INFORMATION
  Report Type: Spontaneous
  Country: US (occurrence: US)
  Receive Date: 20200907
  Receipt Date: 20200930
  Transmission Date: 20201103
  Serious: No
  Sender: FDA-Public Use
  Company Number: US-ASTRAZENECA-2020SF11103

PATIENT
  Age: 41 Year
  Sex: Female
  Weight: 78 kg

DRUGS (5)
  1. ATENOLOL. [Suspect]
     Active Substance: ATENOLOL
     Indication: HEART RATE ABNORMAL
     Route: 065
  2. ATENOLOL. [Suspect]
     Active Substance: ATENOLOL
     Indication: THYROID DISORDER
     Route: 065
  3. FASENRA [Suspect]
     Active Substance: BENRALIZUMAB
     Dosage: UNKNOWN
     Route: 058
  4. MULTIVITAMIN WITH IODINE [Concomitant]
  5. IODINE. [Concomitant]
     Active Substance: IODINE

REACTIONS (8)
  - Blood thyroid stimulating hormone abnormal [Recovering/Resolving]
  - Tremor [Unknown]
  - Off label use [Unknown]
  - Dry eye [Unknown]
  - Thyroid disorder [Recovering/Resolving]
  - Heart rate increased [Unknown]
  - Hyperthyroidism [Unknown]
  - Alopecia [Unknown]
